FAERS Safety Report 9230424 (Version 1)
Quarter: 2013Q2

REPORT INFORMATION
  Report Type: Spontaneous
  Country: US (occurrence: US)
  Receive Date: 20130415
  Receipt Date: 20130415
  Transmission Date: 20140414
  Serious: Yes (Other)
  Sender: FDA-Public Use
  Company Number: PHEH2013US008293

PATIENT
  Sex: Male

DRUGS (2)
  1. DIOVAN HCT [Suspect]
     Dosage: UKN
  2. LATANOPROST [Concomitant]

REACTIONS (2)
  - Glaucoma [Unknown]
  - Visual impairment [Unknown]
